FAERS Safety Report 8126415-6 (Version None)
Quarter: 2012Q1

REPORT INFORMATION
  Report Type: 
  Country: None (occurrence: None)
  Receive Date: 20120209
  Receipt Date: 20120207
  Transmission Date: 20120608
  Serious: No
  Sender: FDA-Public Use
  Company Number: US-PFIZER INC-2012033878

PATIENT
  Sex: Female
  Weight: 77.098 kg

DRUGS (2)
  1. AZITHROMYCIN [Suspect]
     Indication: BRONCHITIS
  2. AZITHROMYCIN [Suspect]
     Indication: PNEUMONIA
     Dosage: 250 MG, 1X/DAY
     Route: 048
     Dates: start: 20120204, end: 20120207

REACTIONS (4)
  - DYSPNOEA [None]
  - THROAT IRRITATION [None]
  - COUGH [None]
  - SPEECH DISORDER [None]
